FAERS Safety Report 13312939 (Version 1)
Quarter: 2017Q1

REPORT INFORMATION
  Report Type: Spontaneous
  Country: FR (occurrence: FR)
  Receive Date: 20170309
  Receipt Date: 20170309
  Transmission Date: 20170428
  Serious: Yes (Other)
  Sender: FDA-Public Use
  Company Number: FR-JNJFOC-20170303824

PATIENT
  Age: 24 Year
  Sex: Female

DRUGS (3)
  1. XEROQUEL [Suspect]
     Active Substance: QUETIAPINE FUMARATE
     Indication: BRIEF PSYCHOTIC DISORDER WITH MARKED STRESSORS
     Route: 065
     Dates: start: 20150626, end: 20150703
  2. ZOLOFT [Suspect]
     Active Substance: SERTRALINE HYDROCHLORIDE
     Indication: BRIEF PSYCHOTIC DISORDER WITH MARKED STRESSORS
     Route: 065
     Dates: start: 201412
  3. RISPERDAL [Suspect]
     Active Substance: RISPERIDONE
     Indication: BRIEF PSYCHOTIC DISORDER WITH MARKED STRESSORS
     Route: 065
     Dates: start: 201408

REACTIONS (5)
  - Product use issue [Unknown]
  - Off label use [Unknown]
  - Blighted ovum [Recovered/Resolved]
  - Exposure during pregnancy [Unknown]
  - Abortion spontaneous [Recovered/Resolved]

NARRATIVE: CASE EVENT DATE: 201408
